FAERS Safety Report 9290320 (Version 1)
Quarter: 2013Q2

REPORT INFORMATION
  Report Type: Spontaneous
  Country: US (occurrence: None)
  Receive Date: 20130514
  Receipt Date: 20130514
  Transmission Date: 20140414
  Serious: Yes (Other)
  Sender: FDA-Public Use
  Company Number: None

PATIENT
  Age: 49 Year
  Sex: Female
  Weight: 66.23 kg

DRUGS (1)
  1. MYRBETRIQ [Suspect]
     Route: 048
     Dates: start: 20130419, end: 20130506

REACTIONS (2)
  - Acne [None]
  - Folliculitis [None]
